FAERS Safety Report 5829501-6 (Version None)
Quarter: 2008Q3

REPORT INFORMATION
  Report Type: 
  Country: None (occurrence: None)
  Receive Date: 20080729
  Receipt Date: 20080717
  Transmission Date: 20090109
  Serious: Yes (Hospitalization)
  Sender: FDA-Public Use
  Company Number: POMP-1000218

PATIENT
  Age: 12 Year
  Sex: Male

DRUGS (1)
  1. MYOZYME [Suspect]
     Indication: GLYCOGEN STORAGE DISEASE TYPE II
     Dosage: 20 MG/KG, Q2W, INTRAVENOUS
     Route: 042
     Dates: start: 20070418

REACTIONS (20)
  - ABASIA [None]
  - ANXIETY [None]
  - ARTHRALGIA [None]
  - ASTHENIA [None]
  - ASTHMA [None]
  - CHEST PAIN [None]
  - DEHYDRATION [None]
  - ERYTHEMA [None]
  - EYE ROLLING [None]
  - FATIGUE [None]
  - HEADACHE [None]
  - HYPOAESTHESIA [None]
  - LIP SWELLING [None]
  - MUSCULAR WEAKNESS [None]
  - NASAL CONGESTION [None]
  - OCULAR HYPERAEMIA [None]
  - PAIN IN EXTREMITY [None]
  - RASH [None]
  - SUPRAVENTRICULAR TACHYCARDIA [None]
  - SYNCOPE [None]
